FAERS Safety Report 6452926-5 (Version None)
Quarter: 2009Q4

REPORT INFORMATION
  Report Type: 
  Country: None (occurrence: None)
  Receive Date: 20091124
  Receipt Date: 20091116
  Transmission Date: 20100525
  Serious: Yes (Hospitalization)
  Sender: FDA-Public Use
  Company Number: US-ASTRAZENECA-2009SE26558

PATIENT
  Age: 51 Year
  Sex: Female
  Weight: 68 kg

DRUGS (11)
  1. SEROQUEL [Suspect]
     Indication: BIPOLAR DISORDER
     Route: 048
     Dates: start: 20091112, end: 20091113
  2. MACRODANTIN [Concomitant]
  3. NEURONTIN [Concomitant]
  4. VIT D [Concomitant]
  5. OSCAL [Concomitant]
  6. ATIVAN [Concomitant]
  7. FOSAMAX [Concomitant]
  8. MOTRIN [Concomitant]
     Indication: PAIN
     Route: 048
  9. LOPID [Concomitant]
     Indication: BLOOD CHOLESTEROL INCREASED
     Dosage: QOD
  10. CIPRO [Concomitant]
  11. EYE DROPS [Concomitant]

REACTIONS (5)
  - AGITATION [None]
  - DROOLING [None]
  - PSYCHOTIC DISORDER [None]
  - SOMNOLENCE [None]
  - VISION BLURRED [None]
